FAERS Safety Report 5337836-9 (Version None)
Quarter: 2007Q2

REPORT INFORMATION
  Report Type: 
  Country: None (occurrence: None)
  Receive Date: 20070308
  Receipt Date: 20070103
  Transmission Date: 20071010
  Serious: No
  Sender: FDA-Public Use
  Company Number: 2007-BP-00079

PATIENT
  Sex: Male

DRUGS (12)
  1. SPIRIVA [Suspect]
     Indication: ASTHMA
     Dosage: 18 MCG (18 MCG, 1 IN 1 D), IH
     Route: 055
     Dates: start: 20060101
  2. ALLEGRA [Concomitant]
  3. PANTOPRAZOLE SODIUM [Concomitant]
  4. SINGULAIR [Concomitant]
  5. LOSARTAN POTASSIUM [Concomitant]
  6. ASMANEX TWISTHALER [Concomitant]
  7. FLOMAX (MORNIFLUMATE) [Concomitant]
  8. FLONASE [Concomitant]
  9. ASPIRIN [Concomitant]
  10. SIMVASTATIN [Concomitant]
  11. CALCIUM (CALCIUM) [Concomitant]
  12. MULTI-VITAMINS [Concomitant]

REACTIONS (6)
  - ABDOMINAL PAIN [None]
  - COUGH [None]
  - DIARRHOEA [None]
  - DRY MOUTH [None]
  - OESOPHAGEAL PAIN [None]
  - PAIN [None]
